FAERS Safety Report 7585868-2 (Version None)
Quarter: 2011Q2

REPORT INFORMATION
  Report Type: 
  Country: None (occurrence: None)
  Receive Date: 20110624
  Receipt Date: 20110615
  Transmission Date: 20111010
  Serious: Yes (Hospitalization)
  Sender: FDA-Public Use
  Company Number: 2011AM004097

PATIENT
  Age: 52 Year
  Sex: Female
  Weight: 113.3993 kg

DRUGS (19)
  1. LOTREL [Concomitant]
  2. PLAVIX [Concomitant]
  3. VITAMINS NOS [Concomitant]
  4. SYMLIN [Suspect]
     Indication: TYPE 2 DIABETES MELLITUS
     Dosage: QID;SC
     Route: 058
     Dates: start: 20110301, end: 20110301
  5. APIDRA [Concomitant]
  6. COMBIGAN [Concomitant]
  7. LASIX [Concomitant]
  8. LANTUS [Concomitant]
  9. CYMBALTA [Concomitant]
  10. AMITRIPTYLINE HCL [Concomitant]
  11. SYMLIN [Suspect]
     Indication: TYPE 2 DIABETES MELLITUS
     Dosage: 30 MCG;QID;SC
     Route: 058
     Dates: start: 20110329
  12. SYMLIN [Suspect]
     Indication: TYPE 2 DIABETES MELLITUS
     Dosage: 180 MCG;QID;SC 120 MCG;QID;SC 60 MCG;QID;SC
     Route: 058
     Dates: start: 20060101, end: 20060101
  13. SYMLIN [Suspect]
     Indication: TYPE 2 DIABETES MELLITUS
     Dosage: 180 MCG;QID;SC 120 MCG;QID;SC 60 MCG;QID;SC
     Route: 058
     Dates: start: 20060101, end: 20110301
  14. CYCLOSPORINE [Concomitant]
  15. LOVAZA [Concomitant]
  16. CARVEDILOL [Concomitant]
  17. DETROL [Concomitant]
  18. CHLORTHALIDONE [Concomitant]
  19. POTASSIUM [Concomitant]

REACTIONS (19)
  - FALL [None]
  - SPEECH DISORDER [None]
  - BLOOD GLUCOSE DECREASED [None]
  - NECK INJURY [None]
  - DYSPNOEA [None]
  - PRESYNCOPE [None]
  - DECREASED APPETITE [None]
  - CHEST PAIN [None]
  - BLOOD GLUCOSE INCREASED [None]
  - ASTHENIA [None]
  - FEELING ABNORMAL [None]
  - DRUG PRESCRIBING ERROR [None]
  - WEIGHT INCREASED [None]
  - DIZZINESS [None]
  - APPENDICECTOMY [None]
  - HEAD INJURY [None]
  - HEADACHE [None]
  - NAUSEA [None]
  - NECK PAIN [None]
